FAERS Safety Report 9303635 (Version 1)
Quarter: 2013Q2

REPORT INFORMATION
  Report Type: Spontaneous
  Country: US (occurrence: US)
  Receive Date: 20130522
  Receipt Date: 20130522
  Transmission Date: 20140414
  Serious: Yes (Hospitalization)
  Sender: FDA-Public Use
  Company Number: US-PFIZER INC-2013152029

PATIENT
  Age: 45 Year
  Sex: Female
  Weight: 59 kg

DRUGS (1)
  1. LEVOXYL [Suspect]
     Indication: GOITRE
     Dosage: 0.25 MG, 1X/DAY
     Route: 048
     Dates: start: 2010, end: 20130514

REACTIONS (5)
  - Malaise [Unknown]
  - Vertigo [Unknown]
  - Dizziness [Unknown]
  - Fatigue [Unknown]
  - Vestibular neuronitis [Unknown]
